FAERS Safety Report 10020117 (Version 1)
Quarter: 2014Q1

REPORT INFORMATION
  Report Type: Report from Study
  Country: US (occurrence: US)
  Receive Date: 20140319
  Receipt Date: 20140319
  Transmission Date: 20141002
  Serious: Yes (Hospitalization)
  Sender: FDA-Public Use
  Company Number: US-ROCHE-1361957

PATIENT
  Age: 51 Year
  Sex: Female
  Weight: 75.6 kg

DRUGS (16)
  1. BEVACIZUMAB [Suspect]
     Indication: COLON CANCER
     Route: 042
     Dates: start: 20131212, end: 20140213
  2. 5-FU [Suspect]
     Indication: COLON CANCER
     Dosage: CONTINUOUS DOSE
     Route: 042
     Dates: start: 20131212, end: 20140213
  3. 5-FU [Suspect]
     Dosage: BOLUS DOSE
     Route: 042
     Dates: start: 20131212, end: 20140213
  4. LEUCOVORIN [Suspect]
     Indication: COLON CANCER
     Route: 042
     Dates: start: 20131212, end: 20140213
  5. OXALIPLATIN [Suspect]
     Indication: COLON CANCER
     Route: 042
     Dates: start: 20131212, end: 20140213
  6. ACYCLOVIR [Concomitant]
     Route: 065
     Dates: start: 20111114
  7. AMLODIPINE [Concomitant]
     Route: 065
     Dates: start: 20131206
  8. COLACE [Concomitant]
     Route: 065
     Dates: start: 20131226
  9. LOVENOX [Concomitant]
     Route: 065
     Dates: start: 20131201
  10. FERROUS SULPHATE [Concomitant]
     Route: 065
     Dates: start: 20131205
  11. ATIVAN [Concomitant]
     Route: 065
     Dates: start: 20131205
  12. MIRALAX [Concomitant]
     Route: 065
     Dates: start: 20140123
  13. ZOFRAN [Concomitant]
     Route: 065
     Dates: start: 20131205
  14. OXYCODONE [Concomitant]
     Route: 065
     Dates: start: 20131226
  15. COMPAZINE [Concomitant]
     Route: 065
     Dates: start: 20131205
  16. SENNA [Concomitant]
     Route: 065
     Dates: start: 20131226

REACTIONS (2)
  - Pyrexia [Recovered/Resolved]
  - Tachycardia [Recovered/Resolved]
